FAERS Safety Report 10677834 (Version 1)
Quarter: 2014Q4

REPORT INFORMATION
  Report Type: Spontaneous
  Country: DE (occurrence: None)
  Receive Date: 20141223
  Receipt Date: 20141223
  Transmission Date: 20150529
  Serious: Yes (Death, Life-Threatening)
  Sender: FDA-Public Use
  Company Number: DE-H14001-14-01827

PATIENT
  Age: 62 Year
  Sex: Male
  Weight: 65 kg

DRUGS (2)
  1. CISPLATIN ( CISPLATIN) (CISPLATIN) [Suspect]
     Active Substance: CISPLATIN
     Indication: HEAD AND NECK CANCER
     Dosage: 100 MG/M2 (172 MG ABSOLUTE), INTRAVENOUS ( NOT OTHERWISE SPECIFIED)
     Route: 042
     Dates: start: 20141107, end: 20141107
  2. FLUOROURACIL ( FLUOROURACIL) (FLOUROURACIL) [Suspect]
     Active Substance: FLUOROURACIL
     Indication: HEAD AND NECK CANCER
     Dosage: 4000 MG/M2 OVER 96 H, INTRAVENOUS ( NOT OTHERWISE SPECIFIED)
     Route: 042
     Dates: start: 20141107, end: 201411

REACTIONS (2)
  - Tumour lysis syndrome [None]
  - Acute hepatic failure [None]

NARRATIVE: CASE EVENT DATE: 20141114
